FAERS Safety Report 4386953-9 (Version None)
Quarter: 2004Q2

REPORT INFORMATION
  Report Type: 
  Country: None (occurrence: None)
  Receive Date: 20040630
  Receipt Date: 20040629
  Transmission Date: 20050107
  Serious: Yes (Death, Hospitalization)
  Sender: FDA-Public Use
  Company Number: US-BRISTOL-MYERS SQUIBB COMPANY-12628053

PATIENT
  Age: 70 Year
  Sex: Male

DRUGS (1)
  1. GLUCOPHAGE [Suspect]

REACTIONS (2)
  - DEATH [None]
  - RENAL FAILURE [None]
